FAERS Safety Report 8501303-1 (Version None)
Quarter: 2012Q3

REPORT INFORMATION
  Report Type: 
  Country: None (occurrence: None)
  Receive Date: 20120710
  Receipt Date: 20120706
  Transmission Date: 20120928
  Serious: No
  Sender: FDA-Public Use
  Company Number: US-PFIZER INC-2012162653

PATIENT
  Sex: Female
  Weight: 68.027 kg

DRUGS (6)
  1. GABAPENTIN [Suspect]
     Indication: FIBROMYALGIA
     Dosage: 300MG FOUR TIMES A DAY OR 300MG FIVE TIMES A DAY AS NEEDED
     Route: 048
     Dates: start: 20120201
  2. GABAPENTIN [Suspect]
     Indication: NEUROPATHY PERIPHERAL
     Dosage: 300 MG, 3X/DAY
     Route: 048
     Dates: start: 20090101, end: 20120201
  3. DICLOFENAC [Concomitant]
     Dosage: UNK
  4. CLONIDINE [Concomitant]
     Indication: NIGHT SWEATS
     Dosage: UNK
  5. TRIAZOLAM [Concomitant]
     Indication: SLEEP DISORDER
     Dosage: UNK
  6. LEVOTHYROXINE [Concomitant]
     Dosage: UNK

REACTIONS (2)
  - WEIGHT INCREASED [None]
  - DRUG INEFFECTIVE [None]
